FAERS Safety Report 14221735 (Version 2)
Quarter: 2018Q1

REPORT INFORMATION
  Report Type: Report from Study
  Country: JP (occurrence: JP)
  Receive Date: 20171124
  Receipt Date: 20180227
  Transmission Date: 20180508
  Serious: Yes (Death, Hospitalization, Other)
  Sender: FDA-Public Use
  Company Number: JP-TAKEDA-2016JP007309

PATIENT
  Age: 40 Year
  Sex: Male
  Weight: 73 kg

DRUGS (7)
  1. FLUCONAZOLE. [Concomitant]
     Active Substance: FLUCONAZOLE
     Indication: PROPHYLAXIS
     Dosage: 10 MG, UNK
     Route: 065
  2. SPRYCEL [Concomitant]
     Active Substance: DASATINIB
     Indication: ACUTE LYMPHOCYTIC LEUKAEMIA
     Dosage: 100 MG, QD
     Route: 065
     Dates: start: 20160929, end: 20161010
  3. FEXOFENADINE HYDROCHLORIDE. [Concomitant]
     Active Substance: FEXOFENADINE HYDROCHLORIDE
     Indication: ECZEMA ASTEATOTIC
     Dosage: UNK
     Route: 065
  4. PONATINIB [Suspect]
     Active Substance: PONATINIB
     Indication: ACUTE LYMPHOCYTIC LEUKAEMIA
     Dosage: 30 MG, QD
     Route: 048
     Dates: start: 20160825, end: 20170111
  5. NERISONA [Concomitant]
     Active Substance: DIFLUCORTOLONE VALERATE
     Indication: ECZEMA ASTEATOTIC
     Dosage: UNK
     Route: 065
  6. LIVALO [Concomitant]
     Active Substance: PITAVASTATIN CALCIUM
     Indication: DYSLIPIDAEMIA
     Dosage: UNK
     Route: 065
     Dates: start: 20161228
  7. PONATINIB [Suspect]
     Active Substance: PONATINIB
     Dosage: 15 MG, QD
     Route: 048
     Dates: start: 20161011, end: 20161024

REACTIONS (5)
  - Dyslipidaemia [Recovered/Resolved]
  - Acute lymphocytic leukaemia [Fatal]
  - Rash [Recovered/Resolved]
  - Eczema asteatotic [Recovering/Resolving]
  - Headache [Recovered/Resolved]

NARRATIVE: CASE EVENT DATE: 20161015
